FAERS Safety Report 9693010 (Version 1)
Quarter: 2013Q4

REPORT INFORMATION
  Report Type: Spontaneous
  Country: US (occurrence: US)
  Receive Date: 20131118
  Receipt Date: 20131118
  Transmission Date: 20140711
  Serious: Yes (Hospitalization, Other)
  Sender: FDA-Public Use
  Company Number: US-PFIZER INC-2013323797

PATIENT
  Age: 48 Year
  Sex: Female

DRUGS (7)
  1. METHYLPREDNISOLONE SODIUM SUCCINATE [Suspect]
     Indication: OPTIC NERVE DISORDER
     Dosage: 1000 MG, 5 DAYS COURSE
     Route: 042
  2. METHYLPREDNISOLONE SODIUM SUCCINATE [Suspect]
     Dosage: 10 DAY STEROID TAPER
     Route: 042
  3. METHYLPREDNISOLONE SODIUM SUCCINATE [Suspect]
     Dosage: 1000 MG, 5 DAYS COURSE
     Route: 042
  4. METHYLPREDNISOLONE SODIUM SUCCINATE [Suspect]
     Dosage: NCREASED TO 2000 MG FOR ANOTHER 5 DAYS
     Route: 042
  5. VALSARTAN [Concomitant]
     Dosage: UNK
  6. ASPIRIN [Concomitant]
     Dosage: UNK
  7. ESOMEPRAZOLE [Concomitant]
     Dosage: UNK

REACTIONS (4)
  - Optic neuropathy [Recovering/Resolving]
  - Diabetes mellitus [Unknown]
  - Acne [Unknown]
  - Cushingoid [Unknown]
